FAERS Safety Report 8273112 (Version 2)
Quarter: 2012Q4

REPORT INFORMATION
  Report Type: 
  Country: GB (occurrence: GB)
  Receive Date: 20111202
  Receipt Date: 20120828
  Transmission Date: 20130627
  Serious: Yes (Other)
  Sender: FDA-Public Use
  Company Number: PHHY2011GB103095

PATIENT
  Age: 38 Year
  Sex: Female
  Weight: 42 kg

DRUGS (9)
  1. FLUOXETINE [Suspect]
     Dosage: 20 mg, QD
     Dates: start: 20101018, end: 20110831
  2. TOPAMAX [Suspect]
     Indication: EPILEPSY
     Dosage: 50 mg, UNK
     Route: 048
     Dates: start: 20070703
  3. FOLIC ACID [Concomitant]
     Dosage: 5 mg, QD
     Dates: start: 20091130
  4. KEPPRA [Concomitant]
     Dosage: 250 mg, QD
     Dates: start: 20110727
  5. KEPPRA [Concomitant]
     Dosage: 250 mg, BID
     Dates: start: 20110831
  6. RIVOTRIL [Concomitant]
     Dosage: 1000 ug, BID
     Dates: start: 20091130
  7. RIVOTRIL [Concomitant]
     Dosage: 200 ug, QD
     Dates: start: 20110915
  8. CLONAZEPAM [Concomitant]
  9. ANTIDEPRESSANTS [Concomitant]

REACTIONS (17)
  - Irritable bowel syndrome [Unknown]
  - Abdominal pain upper [Unknown]
  - Tooth loss [Unknown]
  - Depression [Unknown]
  - Mood swings [Unknown]
  - Emotional poverty [Unknown]
  - Feeling abnormal [Recovered/Resolved]
  - Gingival bleeding [Unknown]
  - Paraesthesia [Unknown]
  - Palpitations [Unknown]
  - Breath odour [Unknown]
  - Sensitivity of teeth [Unknown]
  - Diarrhoea [Unknown]
  - Somnolence [Unknown]
  - Weight decreased [Unknown]
  - Decreased appetite [Unknown]
  - Dysgeusia [Unknown]
